FAERS Safety Report 4289221-9 (Version None)
Quarter: 2004Q1

REPORT INFORMATION
  Report Type: 
  Country: None (occurrence: None)
  Receive Date: 20040205
  Receipt Date: 20040128
  Transmission Date: 20041129
  Serious: Yes (Hospitalization)
  Sender: FDA-Public Use
  Company Number: 2004196423ES

PATIENT
  Age: 50 Year
  Sex: Female

DRUGS (6)
  1. ALDACTONE [Suspect]
     Dosage: SEE IMAGE
     Route: 048
     Dates: start: 20030129, end: 20030316
  2. ALDACTONE [Suspect]
     Dosage: SEE IMAGE
     Route: 048
     Dates: start: 20030319
  3. AUGMENTIN '125' [Suspect]
     Dosage: 2625/375 MG, DAILY, ORAL
     Route: 048
     Dates: start: 20030213, end: 20030316
  4. VOLTAREN [Suspect]
     Dosage: 150 MG, QD, ORAL
     Route: 048
     Dates: start: 20030125, end: 20030129
  5. DUPHALAC [Concomitant]
  6. OPIREN [Concomitant]

REACTIONS (1)
  - ENCEPHALOPATHY [None]
